FAERS Safety Report 4945802-8 (Version None)
Quarter: 2006Q1

REPORT INFORMATION
  Report Type: 
  Country: None (occurrence: None)
  Receive Date: 20060316
  Receipt Date: 20040616
  Transmission Date: 20060701
  Serious: Yes (Hospitalization)
  Sender: FDA-Public Use
  Company Number: JP-BRISTOL-MYERS SQUIBB COMPANY-12617361

PATIENT
  Age: 64 Year
  Sex: Female

DRUGS (7)
  1. TAXOL [Suspect]
     Indication: OVARIAN CANCER
     Route: 041
     Dates: start: 20040527, end: 20040527
  2. CARBOMERCK [Suspect]
     Indication: OVARIAN CANCER
     Route: 041
     Dates: start: 20040527, end: 20040527
  3. DECADRON SRC [Concomitant]
     Route: 041
     Dates: start: 20040527, end: 20040527
  4. GASTER [Concomitant]
     Route: 041
     Dates: start: 20040527, end: 20040527
  5. RESTAMIN [Concomitant]
     Route: 048
     Dates: start: 20040527, end: 20040527
  6. KYTRIL [Concomitant]
     Route: 041
     Dates: start: 20040527, end: 20040527
  7. PRIMPERAN TAB [Concomitant]
     Route: 041
     Dates: start: 20040527, end: 20040527

REACTIONS (1)
  - INAPPROPRIATE ANTIDIURETIC HORMONE SECRETION [None]
